FAERS Safety Report 23983254 (Version 1)
Quarter: 2024Q2

REPORT INFORMATION
  Report Type: Spontaneous
  Country: US (occurrence: US)
  Receive Date: 20240617
  Receipt Date: 20240617
  Transmission Date: 20240716
  Serious: No
  Sender: FDA-Public Use
  Company Number: US-BRISTOL-MYERS SQUIBB COMPANY-2024-097157

PATIENT
  Age: 74 Year
  Sex: Male
  Weight: 85.28 kg

DRUGS (1)
  1. POMALYST [Suspect]
     Active Substance: POMALIDOMIDE
     Indication: Plasma cell myeloma
     Dosage: DAILY FOR 21 DAYS
     Route: 048

REACTIONS (3)
  - Diarrhoea [Recovering/Resolving]
  - Fatigue [Recovering/Resolving]
  - Mood swings [Recovering/Resolving]
